FAERS Safety Report 19155007 (Version 2)
Quarter: 2021Q2

REPORT INFORMATION
  Report Type: Spontaneous
  Country: FR (occurrence: FR)
  Receive Date: 20210419
  Receipt Date: 20210512
  Transmission Date: 20210717
  Serious: Yes (Other)
  Sender: FDA-Public Use
  Company Number: FR-PFIZER INC-2021379286

PATIENT
  Age: 59 Year
  Sex: Female
  Weight: 106 kg

DRUGS (7)
  1. METFORMIN [Concomitant]
     Active Substance: METFORMIN HYDROCHLORIDE
     Dosage: UNK
  2. PRAVASTATIN SODIUM. [Concomitant]
     Active Substance: PRAVASTATIN SODIUM
     Dosage: UNK
  3. BECLOMETASON [Concomitant]
     Active Substance: BECLOMETHASONE DIPROPIONATE
     Dosage: UNK
  4. XYDALBA [Concomitant]
     Active Substance: DALBAVANCIN HYDROCHLORIDE
     Dosage: UNK
  5. ATENOLOL. [Concomitant]
     Active Substance: ATENOLOL
     Dosage: UNK
  6. LINEZOLID. [Suspect]
     Active Substance: LINEZOLID
     Indication: INFECTION
     Dosage: 1200 MG, 1X/DAY
     Route: 048
     Dates: start: 20210217
  7. CAPTOPRIL. [Concomitant]
     Active Substance: CAPTOPRIL
     Dosage: UNK

REACTIONS (4)
  - Condition aggravated [Not Recovered/Not Resolved]
  - Anaemia [Not Recovered/Not Resolved]
  - Product use issue [Unknown]
  - Off label use [Unknown]

NARRATIVE: CASE EVENT DATE: 20210217
